FAERS Safety Report 8707583 (Version 2)
Quarter: 2013Q4

REPORT INFORMATION
  Report Type: Spontaneous
  Country: US (occurrence: US)
  Receive Date: 20120805
  Receipt Date: 20131031
  Transmission Date: 20140711
  Serious: No
  Sender: FDA-Public Use
  Company Number: US-009507513-2012SP032315

PATIENT
  Age: 48 Year
  Sex: Male
  Weight: 88.45 kg

DRUGS (3)
  1. CLARITIN-D [Suspect]
     Indication: RHINITIS ALLERGIC
     Dosage: 5 MG, Q12H
     Route: 048
     Dates: start: 2010, end: 2012
  2. CLARITIN-D [Suspect]
     Indication: MEDICAL OBSERVATION
  3. CORTICOSTEROIDS (UNSPECIFIED) [Concomitant]
     Indication: RHINITIS ALLERGIC
     Dosage: UNK UNK, UNKNOWN

REACTIONS (2)
  - Drug ineffective [Recovered/Resolved]
  - Expired drug administered [Recovered/Resolved]
